FAERS Safety Report 7262588-5 (Version None)
Quarter: 2011Q1

REPORT INFORMATION
  Report Type: 
  Country: None (occurrence: None)
  Receive Date: 20110120
  Receipt Date: 20110104
  Transmission Date: 20110831
  Serious: Yes (Hospitalization)
  Sender: FDA-Public Use
  Company Number: APP201100003

PATIENT

DRUGS (5)
  1. DEXAMETHASONE SODIUM PHOSPHATE [Suspect]
     Indication: INJECTION
     Dosage: WITHIN THE LAST 10 DAYS
  2. DEXAMETHASONE SODIUM PHOSPHATE [Suspect]
  3. DEXAMETHASONE SODIUM PHOSPHATE [Suspect]
  4. OMNIPAQUE 140 [Concomitant]
  5. BUPIVACAINE (BUPIVACAINE) [Concomitant]

REACTIONS (2)
  - ASTHENIA [None]
  - INJECTION SITE PAIN [None]
